FAERS Safety Report 17355626 (Version 3)
Quarter: 2020Q2

REPORT INFORMATION
  Report Type: Spontaneous
  Country: JP (occurrence: JP)
  Receive Date: 20200131
  Receipt Date: 20200624
  Transmission Date: 20200713
  Serious: Yes (Death, Life-Threatening, Hospitalization, Other)
  Sender: FDA-Public Use
  Company Number: JP-CELGENEUS-JPN-20200110882

PATIENT
  Age: 71 Year
  Sex: Male
  Weight: 56.25 kg

DRUGS (13)
  1. CARBOPLATIN. [Concomitant]
     Active Substance: CARBOPLATIN
     Indication: SQUAMOUS CELL CARCINOMA OF LUNG
     Dosage: 500 MILLIGRAM
     Route: 041
     Dates: start: 20181016, end: 20181031
  2. FINIBAX [Concomitant]
     Active Substance: DORIPENEM MONOHYDRATE
     Indication: PRODUCT USED FOR UNKNOWN INDICATION
     Dosage: 1.5 GRAM
     Route: 041
     Dates: start: 20181024, end: 20181030
  3. LOXOPROFEN SODIUM HYDRATE [Concomitant]
     Active Substance: LOXOPROFEN SODIUM DIHYDRATE
     Indication: PRODUCT USED FOR UNKNOWN INDICATION
     Route: 048
  4. LECICARBON [Concomitant]
     Active Substance: SODIUM BICARBONATE\SODIUM PHOSPHATE, MONOBASIC
     Indication: PRODUCT USED FOR UNKNOWN INDICATION
     Route: 054
  5. MAGNESIUM OXIDE. [Concomitant]
     Active Substance: MAGNESIUM OXIDE
     Indication: PRODUCT USED FOR UNKNOWN INDICATION
     Route: 048
  6. CLOFEDANOL HYDROCHLORIDE [Concomitant]
     Active Substance: CHLOPHEDIANOL HYDROCHLORIDE
     Indication: PRODUCT USED FOR UNKNOWN INDICATION
     Route: 048
  7. ABRAXANE [Suspect]
     Active Substance: PACLITAXEL
     Indication: SQUAMOUS CELL CARCINOMA OF LUNG
     Dosage: 150 MILLIGRAM
     Route: 041
     Dates: start: 20181016, end: 20181031
  8. NAPROXEN. [Concomitant]
     Active Substance: NAPROXEN
     Indication: PRODUCT USED FOR UNKNOWN INDICATION
     Route: 048
  9. AMLODIPINE BESILATE [Concomitant]
     Active Substance: AMLODIPINE BESYLATE
     Indication: PRODUCT USED FOR UNKNOWN INDICATION
     Route: 048
  10. MICOMBI [Concomitant]
     Active Substance: HYDROCHLOROTHIAZIDE\TELMISARTAN
     Indication: PRODUCT USED FOR UNKNOWN INDICATION
     Route: 048
  11. SUVOREXANT. [Concomitant]
     Active Substance: SUVOREXANT
     Indication: PRODUCT USED FOR UNKNOWN INDICATION
     Route: 048
  12. SENNOSIDE [Concomitant]
     Active Substance: SENNOSIDES
     Indication: PRODUCT USED FOR UNKNOWN INDICATION
     Route: 048
  13. ZOLPIDEM TARTRATE. [Concomitant]
     Active Substance: ZOLPIDEM TARTRATE
     Indication: PRODUCT USED FOR UNKNOWN INDICATION
     Route: 048

REACTIONS (5)
  - Nephrotic syndrome [Unknown]
  - Inflammation [Recovering/Resolving]
  - Acute kidney injury [Not Recovered/Not Resolved]
  - Haemoptysis [Fatal]
  - Pneumonia [Unknown]

NARRATIVE: CASE EVENT DATE: 20181128
